FAERS Safety Report 24277555 (Version 1)
Quarter: 2024Q3

REPORT INFORMATION
  Report Type: Spontaneous
  Country: US (occurrence: None)
  Receive Date: 20240903
  Receipt Date: 20240903
  Transmission Date: 20241017
  Serious: No
  Sender: ASTRAZENECA
  Company Number: 2024A198306

PATIENT
  Sex: Female

DRUGS (4)
  1. FULVESTRANT [Suspect]
     Active Substance: FULVESTRANT
     Indication: Chemotherapy
     Dosage: EVERY FOUR WEEKS
     Route: 030
     Dates: end: 20240808
  2. IBRANCE [Suspect]
     Active Substance: PALBOCICLIB
     Indication: Breast cancer metastatic
     Dosage: EVERY DAY FOR 3 WEEKS AND THEN 1 WEEK OFF
     Route: 048
     Dates: end: 20240808
  3. LEVOTHYROXINE [Concomitant]
     Active Substance: LEVOTHYROXINE\LEVOTHYROXINE SODIUM
     Indication: Hypothyroidism
     Route: 048
     Dates: start: 1996
  4. XGEVA [Concomitant]
     Active Substance: DENOSUMAB
     Indication: Hypothyroidism
     Dates: start: 201808

REACTIONS (3)
  - Neutropenia [Unknown]
  - Neutrophil count decreased [Unknown]
  - Drug ineffective [Unknown]
